FAERS Safety Report 8839325 (Version 1)
Quarter: 2012Q4

REPORT INFORMATION
  Report Type: Spontaneous
  Country: US (occurrence: None)
  Receive Date: 20121012
  Receipt Date: 20121012
  Transmission Date: 20130627
  Serious: No
  Sender: FDA-Public Use
  Company Number: None

PATIENT
  Sex: Male

DRUGS (1)
  1. VIVITROL [Suspect]
     Indication: ALCOHOL DEPENDENCE SYNDROME
     Route: 030
     Dates: start: 201208

REACTIONS (3)
  - Injection site reaction [None]
  - Injection site induration [None]
  - Injection site inflammation [None]
